FAERS Safety Report 24276005 (Version 5)
Quarter: 2025Q1

REPORT INFORMATION
  Report Type: Report from Study
  Country: US (occurrence: US)
  Receive Date: 20240903
  Receipt Date: 20250313
  Transmission Date: 20250409
  Serious: Yes (Hospitalization, Other)
  Sender: TAKEDA
  Company Number: US-TAKEDA-2024TUS086305

PATIENT
  Age: 48 Year
  Sex: Female

DRUGS (3)
  1. VEDOLIZUMAB [Suspect]
     Active Substance: VEDOLIZUMAB
     Indication: Colitis ulcerative
  2. VEDOLIZUMAB [Suspect]
     Active Substance: VEDOLIZUMAB
     Indication: Colitis ulcerative
     Dosage: 108 MILLIGRAM, Q2WEEKS
     Dates: start: 20240808
  3. VEDOLIZUMAB [Suspect]
     Active Substance: VEDOLIZUMAB

REACTIONS (20)
  - Rectocele [Unknown]
  - Hepatitis [Unknown]
  - Injection site pain [Recovered/Resolved]
  - Injection site bruising [Recovered/Resolved]
  - Product administration error [Recovering/Resolving]
  - Hepatomegaly [Unknown]
  - Injection site extravasation [Unknown]
  - Incorrect dose administered [Unknown]
  - Inappropriate schedule of product administration [Unknown]
  - Glucose tolerance impaired [Unknown]
  - Uterine pain [Recovered/Resolved]
  - Uterine enlargement [Unknown]
  - Injection site discolouration [Recovered/Resolved]
  - Device leakage [Recovering/Resolving]
  - Jaundice [Unknown]
  - Heart rate increased [Unknown]
  - Chest pain [Unknown]
  - Headache [Unknown]
  - Rash [Unknown]
  - Nausea [Unknown]

NARRATIVE: CASE EVENT DATE: 20240824
